FAERS Safety Report 4625770-9 (Version None)
Quarter: 2005Q1

REPORT INFORMATION
  Report Type: 
  Country: None (occurrence: None)
  Receive Date: 20050330
  Receipt Date: 20050310
  Transmission Date: 20050727
  Serious: Yes (Death, Other)
  Sender: FDA-Public Use
  Company Number: FR_050306005

PATIENT
  Age: 19 Year
  Sex: Male

DRUGS (1)
  1. ZYPREXA [Suspect]
     Indication: BRIEF PSYCHOTIC DISORDER WITH MARKED STRESSORS
     Dosage: 10 MG DAY
     Dates: start: 20040601

REACTIONS (3)
  - CARDIAC DISORDER [None]
  - PULMONARY OEDEMA [None]
  - WEIGHT INCREASED [None]
